FAERS Safety Report 23556745 (Version 1)
Quarter: 2024Q1

REPORT INFORMATION
  Report Type: Report from Study
  Country: CA (occurrence: CA)
  Receive Date: 20240223
  Receipt Date: 20240223
  Transmission Date: 20240409
  Serious: Yes (Other)
  Sender: FDA-Public Use
  Company Number: CA-SAMSUNG BIOEPIS-SB-2024-03888

PATIENT
  Age: 47 Year
  Sex: Female

DRUGS (3)
  1. ETANERCEPT [Suspect]
     Active Substance: ETANERCEPT
     Indication: Ankylosing spondylitis
     Dates: start: 20220516
  2. NIFEDIPINE [Suspect]
     Active Substance: NIFEDIPINE
     Indication: Product used for unknown indication
  3. ENBREL [Concomitant]
     Active Substance: ETANERCEPT
     Indication: Product used for unknown indication

REACTIONS (16)
  - Anal stenosis [Unknown]
  - Pelvic floor dysfunction [Unknown]
  - Abdominal distension [Unknown]
  - Decreased appetite [Unknown]
  - Urinary retention [Unknown]
  - Lichen sclerosus [Unknown]
  - Carpal tunnel syndrome [Unknown]
  - Dry eye [Unknown]
  - Haemorrhage [Unknown]
  - Feeding disorder [Not Recovered/Not Resolved]
  - Gastric hypertonia [Unknown]
  - Ill-defined disorder [Unknown]
  - Gait inability [Unknown]
  - Bedridden [Unknown]
  - Nerve compression [Unknown]
  - Dermatitis [Unknown]

NARRATIVE: CASE EVENT DATE: 20230901
